FAERS Safety Report 8340246-3 (Version None)
Quarter: 2012Q2

REPORT INFORMATION
  Report Type: 
  Country: None (occurrence: None)
  Receive Date: 20120507
  Receipt Date: 20120425
  Transmission Date: 20120825
  Serious: Yes (Other)
  Sender: FDA-Public Use
  Company Number: US-SANOFI-AVENTIS-2012SA029404

PATIENT
  Age: 58 Year
  Sex: Female
  Weight: 81 kg

DRUGS (3)
  1. ANTIHYPERTENSIVES [Concomitant]
  2. PLAVIX [Suspect]
     Route: 048
  3. PLAVIX [Suspect]
     Indication: STENT PLACEMENT
     Route: 048

REACTIONS (5)
  - HEART RATE INCREASED [None]
  - BLINDNESS UNILATERAL [None]
  - VISUAL ACUITY REDUCED [None]
  - CATARACT [None]
  - VISION BLURRED [None]
